FAERS Safety Report 6630905-2 (Version None)
Quarter: 2010Q1

REPORT INFORMATION
  Report Type: 
  Country: None (occurrence: None)
  Receive Date: 20100311
  Receipt Date: 20100308
  Transmission Date: 20100710
  Serious: Yes (Death, Hospitalization)
  Sender: FDA-Public Use
  Company Number: BR-ABBOTT-09P-020-0602393-00

PATIENT
  Sex: Female
  Weight: 38 kg

DRUGS (9)
  1. HUMIRA [Suspect]
     Indication: RHEUMATOID ARTHRITIS
     Route: 058
     Dates: start: 20090911
  2. METHOTREXATE [Concomitant]
     Indication: MUSCULOSKELETAL PAIN
     Route: 048
  3. PREDNISONE [Concomitant]
     Indication: MUSCULOSKELETAL PAIN
     Route: 048
  4. DIPYRONE [Concomitant]
     Indication: PAIN
     Dosage: WHEN IT IS NECESSARY
     Route: 048
  5. CHLOROQUINE PHOSPHATE [Concomitant]
     Indication: ARTHRALGIA
     Route: 048
  6. ALENDRONATE SODIUM [Concomitant]
     Indication: ARTHRALGIA
     Route: 048
  7. FOLIC ACID [Concomitant]
     Indication: ARTHRALGIA
     Route: 048
  8. OMEPRAZOLE [Concomitant]
     Indication: GASTRIC DISORDER
     Route: 048
  9. TANDRILAX [Concomitant]
     Indication: BACK PAIN
     Route: 048

REACTIONS (14)
  - ABDOMINAL PAIN UPPER [None]
  - CARDIAC FAILURE [None]
  - DISORIENTATION [None]
  - DYSURIA [None]
  - GROIN PAIN [None]
  - HYPOTONIA [None]
  - HYPOXIA [None]
  - INFECTION [None]
  - LUNG INFILTRATION [None]
  - MALAISE [None]
  - PAIN IN EXTREMITY [None]
  - PYREXIA [None]
  - SEPSIS [None]
  - VOMITING [None]
